FAERS Safety Report 4732813-0 (Version None)
Quarter: 2005Q3

REPORT INFORMATION
  Report Type: 
  Country: None (occurrence: None)
  Receive Date: 20050801
  Receipt Date: 20050721
  Transmission Date: 20060218
  Serious: Yes (Life-Threatening, Hospitalization)
  Sender: FDA-Public Use
  Company Number: 2005075302

PATIENT
  Age: 67 Year
  Sex: Female

DRUGS (6)
  1. CABASERIL (CABERGOLINE) [Suspect]
     Indication: PARKINSON'S DISEASE
     Dosage: 8 MG (8 MG, DAILY); ORAL, 5MG (5 MG, DAILY); ORAL
     Route: 048
     Dates: start: 20010101, end: 20010101
  2. CABASERIL (CABERGOLINE) [Suspect]
     Indication: PARKINSON'S DISEASE
     Dosage: 8 MG (8 MG, DAILY); ORAL, 5MG (5 MG, DAILY); ORAL
     Route: 048
     Dates: start: 20010101
  3. MADOPAR (BENSERAZIDE HYDROCHLORIDE, LEVODOPA) [Concomitant]
  4. MADOPAR 62.5 (BENSERAZIDE HYDROCHLORIDE, LEVODOPA) [Concomitant]
  5. COMTESS (ENTACAPONE) [Concomitant]
  6. AMANTADINE HCL [Concomitant]

REACTIONS (5)
  - AORTIC VALVE INCOMPETENCE [None]
  - DYSPNOEA EXERTIONAL [None]
  - PERICARDITIS CONSTRICTIVE [None]
  - PLEURAL EFFUSION [None]
  - TRICUSPID VALVE REPAIR [None]
